FAERS Safety Report 6404023-2 (Version None)
Quarter: 2009Q4

REPORT INFORMATION
  Report Type: 
  Country: None (occurrence: None)
  Receive Date: 20091016
  Receipt Date: 20090812
  Transmission Date: 20100525
  Serious: No
  Sender: FDA-Public Use
  Company Number: US-ALEXION-A200900654

PATIENT
  Sex: Female

DRUGS (4)
  1. SOLIRIS [Suspect]
     Indication: PAROXYSMAL NOCTURNAL HAEMOGLOBINURIA
     Dosage: 600 MG, UNK
     Route: 042
     Dates: start: 20090806, end: 20090813
  2. PERCOCET [Concomitant]
     Indication: PAIN
     Dosage: 5/325 MG, 1-2 Q4H PRN
     Route: 048
  3. IRON [Concomitant]
     Indication: ANAEMIA
     Dosage: 325 MG, QD
     Route: 048
  4. FOLIC ACID [Concomitant]
     Indication: PAROXYSMAL NOCTURNAL HAEMOGLOBINURIA
     Dosage: 1 MG, QD
     Route: 048

REACTIONS (3)
  - ABDOMINAL DISCOMFORT [None]
  - RASH [None]
  - VOMITING [None]
